FAERS Safety Report 5648046-X (Version None)
Quarter: 2008Q1

REPORT INFORMATION
  Report Type: 
  Country: None (occurrence: None)
  Receive Date: 20080304
  Receipt Date: 20071119
  Transmission Date: 20080703
  Serious: No
  Sender: FDA-Public Use
  Company Number: US-BAYER-200714945NA

PATIENT
  Age: 35 Year
  Sex: Female
  Weight: 55 kg

DRUGS (2)
  1. MIRENA [Suspect]
     Indication: CONTRACEPTION
     Route: 015
     Dates: start: 20070207
  2. AMITIZA [Concomitant]
     Indication: IRRITABLE BOWEL SYNDROME

REACTIONS (4)
  - AMENORRHOEA [None]
  - BREAST TENDERNESS [None]
  - OVULATION PAIN [None]
  - VAGINAL HAEMORRHAGE [None]
